FAERS Safety Report 9802346 (Version 2)
Quarter: 2014Q3

REPORT INFORMATION
  Report Type: Spontaneous
  Country: US (occurrence: US)
  Receive Date: 20140107
  Receipt Date: 20140814
  Transmission Date: 20150326
  Serious: Yes (Hospitalization, Other)
  Sender: FDA-Public Use
  Company Number: US-009507513-1401USA002055

PATIENT
  Sex: Female

DRUGS (1)
  1. NUVARING [Suspect]
     Active Substance: ETHINYL ESTRADIOL\ETONOGESTREL
     Dosage: UNK
     Route: 067
     Dates: end: 20080117

REACTIONS (11)
  - Ovarian cystectomy [Unknown]
  - Deep vein thrombosis [Unknown]
  - Tricuspid valve incompetence [Unknown]
  - Phlebitis [Unknown]
  - Adverse drug reaction [Unknown]
  - Hypercholesterolaemia [Unknown]
  - Rhinoplasty [Unknown]
  - Pulmonary hypertension [Unknown]
  - Mitral valve incompetence [Unknown]
  - Blood pressure decreased [Unknown]
  - Pulmonary embolism [Unknown]

NARRATIVE: CASE EVENT DATE: 20080119
